FAERS Safety Report 6644901-2 (Version None)
Quarter: 2010Q1

REPORT INFORMATION
  Report Type: 
  Country: None (occurrence: None)
  Receive Date: 20100322
  Receipt Date: 20100308
  Transmission Date: 20100710
  Serious: Yes (Disabling, Other)
  Sender: FDA-Public Use
  Company Number: PHEH2009US00892

PATIENT
  Sex: Male

DRUGS (17)
  1. ZOMETA [Suspect]
     Indication: NEOPLASM MALIGNANT
     Dosage: UNK
     Dates: start: 20080201, end: 20080801
  2. LUPRON [Concomitant]
     Dosage: UNK
     Dates: start: 20080117
  3. PEN-VEE K [Concomitant]
     Dosage: 500 MG, UNK
  4. CASODEX [Concomitant]
     Dosage: 50 MG, QD
     Route: 048
  5. PERCOCET [Concomitant]
     Dosage: 5.325 MG, Q4H
     Route: 048
  6. ADVAIR DISKUS 100/50 [Concomitant]
     Dosage: 100-50MCG DISK BID
  7. SPIRIVA [Concomitant]
     Dosage: 18 MCG AS DIRECTED
  8. PROPRANOLOL HCL W/HYDROCHLOROTHIAZIDE [Concomitant]
     Dosage: 80/25 TAB
     Route: 048
  9. ALBUTEROL [Concomitant]
     Dosage: 90MCG
  10. AZITHROMYCIN [Concomitant]
     Dosage: 250 MG, UNK
     Route: 048
  11. LISINOPRIL [Concomitant]
     Dosage: 10 MG, UNK
  12. PREDNISONE TAB [Concomitant]
     Dosage: 4 MG, UNK
  13. PREDNISONE TAB [Concomitant]
     Dosage: 20 MG, UNK
     Route: 048
  14. LEVAQUIN [Concomitant]
     Dosage: 500 MG, UNK
     Dates: start: 20080825
  15. CHLORHEXIDINE DENTAL ^ACO^ [Concomitant]
     Dosage: UNK
     Route: 049
  16. PROAIR (FLUTICASONE PROPIONATE) [Concomitant]
     Dosage: 90MCG
  17. AZITHROMYCIN [Concomitant]
     Dosage: UNK

REACTIONS (23)
  - ANHEDONIA [None]
  - ANXIETY [None]
  - AORTIC ANEURYSM [None]
  - ARTERIOSCLEROSIS [None]
  - BACK PAIN [None]
  - BONE LESION [None]
  - DISCOMFORT [None]
  - DYSPHAGIA [None]
  - EMOTIONAL DISTRESS [None]
  - HIATUS HERNIA [None]
  - INJURY [None]
  - MALIGNANT NEOPLASM PROGRESSION [None]
  - MENTAL DISORDER [None]
  - OSTEONECROSIS [None]
  - PAIN [None]
  - PAIN IN JAW [None]
  - PHYSICAL DISABILITY [None]
  - POLLAKIURIA [None]
  - QUALITY OF LIFE DECREASED [None]
  - REFLUX OESOPHAGITIS [None]
  - SCAR [None]
  - SYNOVIAL CYST [None]
  - TOOTHACHE [None]
